FAERS Safety Report 23682505 (Version 1)
Quarter: 2024Q1

REPORT INFORMATION
  Report Type: Spontaneous
  Country: GR (occurrence: GR)
  Receive Date: 20240328
  Receipt Date: 20240328
  Transmission Date: 20240410
  Serious: Yes (Hospitalization, Other)
  Sender: FDA-Public Use
  Company Number: GR-NOVPHSZ-PHHY2018GR047512

PATIENT
  Age: 77 Year
  Sex: Male

DRUGS (3)
  1. LEVETIRACETAM [Suspect]
     Active Substance: LEVETIRACETAM
     Indication: Epilepsy
     Dosage: UNK
     Route: 065
  2. OXCARBAZEPINE [Suspect]
     Active Substance: OXCARBAZEPINE
     Indication: Epilepsy
     Dosage: UNK
     Route: 065
  3. VALPROATE SODIUM [Suspect]
     Active Substance: VALPROATE SODIUM
     Indication: Epilepsy
     Dosage: UNK
     Route: 065

REACTIONS (10)
  - Encephalitis autoimmune [Unknown]
  - Partial seizures [Recovered/Resolved]
  - Bradyarrhythmia [Recovering/Resolving]
  - Hallucinations, mixed [Recovered/Resolved]
  - Confusional state [Recovering/Resolving]
  - Memory impairment [Recovering/Resolving]
  - Muscle contractions involuntary [Recovering/Resolving]
  - Hallucinations, mixed [Recovered/Resolved]
  - Muscle contracture [Recovered/Resolved]
  - Hallucination, auditory [Recovered/Resolved]
